FAERS Safety Report 9647652 (Version 4)
Quarter: 2013Q4

REPORT INFORMATION
  Report Type: Report from Study
  Country: DE (occurrence: DE)
  Receive Date: 20131028
  Receipt Date: 20131216
  Transmission Date: 20140711
  Serious: Yes (Hospitalization)
  Sender: FDA-Public Use
  Company Number: DE-BRISTOL-MYERS SQUIBB COMPANY-19508183

PATIENT
  Age: 70 Year
  Sex: Female

DRUGS (7)
  1. IPILIMUMAB [Suspect]
     Indication: METASTATIC MALIGNANT MELANOMA
     Dosage: 16SEP13-7OCT13,08OCT13-18NOV13?INTERRUPTED:18NOV13
     Route: 042
     Dates: start: 20130916
  2. LISINOPRIL [Concomitant]
  3. PANTOPRAZOLE [Concomitant]
  4. BISOPROLOL [Concomitant]
  5. LYRICA [Concomitant]
  6. METAMIZOLE [Concomitant]
  7. TILIDINE [Concomitant]

REACTIONS (4)
  - Gastrointestinal inflammation [Recovered/Resolved]
  - Cystitis [Recovered/Resolved]
  - Abdominal pain lower [Unknown]
  - Osteitis [Not Recovered/Not Resolved]
